FAERS Safety Report 8811195 (Version 1)
Quarter: 2012Q4

REPORT INFORMATION
  Report Type: Spontaneous
  Country: US (occurrence: None)
  Receive Date: 20120925
  Receipt Date: 20120925
  Transmission Date: 20130627
  Serious: No
  Sender: FDA-Public Use
  Company Number: None

PATIENT
  Age: 51 Year
  Sex: Female
  Weight: 104.33 kg

DRUGS (1)
  1. ZOFRAN [Suspect]
     Dates: start: 20120920, end: 20120920

REACTIONS (6)
  - Immediate post-injection reaction [None]
  - Feeling hot [None]
  - Dizziness [None]
  - Dyskinesia [None]
  - Feeling abnormal [None]
  - Blood pressure decreased [None]
